FAERS Safety Report 6466867-0 (Version None)
Quarter: 2009Q4

REPORT INFORMATION
  Report Type: 
  Country: None (occurrence: None)
  Receive Date: 20091127
  Receipt Date: 20091109
  Transmission Date: 20100525
  Serious: Yes (Hospitalization, Other)
  Sender: FDA-Public Use
  Company Number: 2009AC000109

PATIENT
  Age: 71 Year
  Sex: Female

DRUGS (11)
  1. DIGOXIN [Suspect]
     Dosage: PO
     Route: 048
     Dates: end: 20071121
  2. AMIODARONE HCL [Suspect]
  3. PEPCID [Concomitant]
  4. PROTONIX [Concomitant]
  5. CARAFATE [Concomitant]
  6. ZITHROMAX [Concomitant]
  7. LEVAQUIN [Concomitant]
  8. LIPITOR [Concomitant]
  9. SYNTHROID [Concomitant]
  10. TRIAMTERENE [Concomitant]
  11. EXCEDRIN (MIGRAINE) [Concomitant]

REACTIONS (12)
  - ACCIDENT [None]
  - BRADYCARDIA [None]
  - DEFORMITY [None]
  - ECONOMIC PROBLEM [None]
  - HYPERLIPIDAEMIA [None]
  - MULTIPLE INJURIES [None]
  - PAIN [None]
  - PNEUMONIA [None]
  - REFLUX OESOPHAGITIS [None]
  - SUBDURAL HAEMATOMA [None]
  - THERAPEUTIC AGENT TOXICITY [None]
  - THROMBOSIS [None]
